FAERS Safety Report 5030692-8 (Version None)
Quarter: 2006Q2

REPORT INFORMATION
  Report Type: 
  Country: None (occurrence: None)
  Receive Date: 20060615
  Receipt Date: 20060605
  Transmission Date: 20061013
  Serious: Yes (Hospitalization)
  Sender: FDA-Public Use
  Company Number: 2006072266

PATIENT
  Age: 27 Year
  Sex: Female

DRUGS (1)
  1. SULFASALAZINE [Suspect]
     Indication: COLITIS ULCERATIVE
     Dosage: 3000 MG, ORAL
     Route: 048
     Dates: start: 20060214, end: 20060224

REACTIONS (3)
  - LIVER DISORDER [None]
  - LUNG DISORDER [None]
  - RASH [None]
